FAERS Safety Report 11293770 (Version 1)
Quarter: 2015Q3

REPORT INFORMATION
  Report Type: Spontaneous
  Country: US (occurrence: US)
  Receive Date: 20150722
  Receipt Date: 20150722
  Transmission Date: 20151125
  Serious: Yes (Other)
  Sender: FDA-Public Use
  Company Number: ALCN2015US004385

PATIENT
  Age: 37 Year
  Sex: Male

DRUGS (1)
  1. CIPRODEX [Suspect]
     Active Substance: CIPROFLOXACIN HYDROCHLORIDE\DEXAMETHASONE
     Indication: OTITIS EXTERNA
     Dosage: 5 GTT, BID
     Route: 001
     Dates: start: 20150708, end: 20150709

REACTIONS (8)
  - Otorrhoea [Recovering/Resolving]
  - Ear pain [Recovered/Resolved]
  - Swelling face [Recovering/Resolving]
  - Ear haemorrhage [Recovered/Resolved]
  - Ear swelling [Recovering/Resolving]
  - Hypersensitivity [Recovering/Resolving]
  - Nausea [Recovered/Resolved]
  - Pyrexia [Recovered/Resolved]

NARRATIVE: CASE EVENT DATE: 20150709
